FAERS Safety Report 10948041 (Version 1)
Quarter: 2015Q1

REPORT INFORMATION
  Report Type: Spontaneous
  Country: US (occurrence: US)
  Receive Date: 20150324
  Receipt Date: 20150324
  Transmission Date: 20150721
  Serious: Yes (Death)
  Sender: FDA-Public Use
  Company Number: US-CIPLA LTD.-2015US02219

PATIENT

DRUGS (8)
  1. ZOLPIDEM TARTARATE [Suspect]
     Active Substance: ZOLPIDEM TARTRATE
  2. WARFARIN [Suspect]
     Active Substance: WARFARIN
  3. BENZONATATE. [Suspect]
     Active Substance: BENZONATATE
  4. ACETAMINOPHEN/HYDROCODONE [Suspect]
     Active Substance: ACETAMINOPHEN\HYDROCODONE
  5. HYDROXYZINE [Suspect]
     Active Substance: HYDROXYZINE\HYDROXYZINE HYDROCHLORIDE
  6. ACETAMINOPHEN. [Suspect]
     Active Substance: ACETAMINOPHEN
  7. QUETIAPINE [Suspect]
     Active Substance: QUETIAPINE
  8. NABUMETONE. [Suspect]
     Active Substance: NABUMETONE

REACTIONS (1)
  - Completed suicide [Fatal]
